FAERS Safety Report 6414847-3 (Version None)
Quarter: 2009Q4

REPORT INFORMATION
  Report Type: 
  Country: None (occurrence: None)
  Receive Date: 20091026
  Receipt Date: 20090127
  Transmission Date: 20100525
  Serious: No
  Sender: FDA-Public Use
  Company Number: US-ABBOTT-09P-163-0500543-00

PATIENT
  Sex: Female
  Weight: 48.578 kg

DRUGS (1)
  1. LUPRON DEPOT [Suspect]
     Indication: ENDOMETRIOSIS
     Dosage: UNKNOWN DOSE, WILL CONTINUE C Q 3MOS DOSE
     Route: 058
     Dates: start: 20081226

REACTIONS (4)
  - ASTHENIA [None]
  - FATIGUE [None]
  - HEADACHE [None]
  - NIGHT SWEATS [None]
